FAERS Safety Report 6236419-6 (Version None)
Quarter: 2009Q2

REPORT INFORMATION
  Report Type: 
  Country: None (occurrence: None)
  Receive Date: 20090619
  Receipt Date: 20090612
  Transmission Date: 20091009
  Serious: Yes (Hospitalization, Other)
  Sender: FDA-Public Use
  Company Number: BR-ASTRAZENECA-2009UW15522

PATIENT
  Age: 67 Year
  Sex: Male

DRUGS (1)
  1. NEXIUM [Suspect]
     Route: 048
     Dates: start: 20090401

REACTIONS (3)
  - COUGH [None]
  - NOSOCOMIAL INFECTION [None]
  - PRURITUS GENERALISED [None]
